FAERS Safety Report 24683385 (Version 1)
Quarter: 2024Q4

REPORT INFORMATION
  Report Type: Spontaneous
  Country: US (occurrence: US)
  Receive Date: 20241201
  Receipt Date: 20241201
  Transmission Date: 20250114
  Serious: No
  Sender: BIOGEN
  Company Number: US-BIOGEN-2024BI01292253

PATIENT
  Age: 62 Year
  Sex: Male

DRUGS (1)
  1. QALSODY [Suspect]
     Active Substance: TOFERSEN
     Indication: Product used for unknown indication
     Route: 050
     Dates: start: 20241126

REACTIONS (2)
  - Arthralgia [Unknown]
  - Procedural pain [Recovered/Resolved]

NARRATIVE: CASE EVENT DATE: 20241126
